FAERS Safety Report 5602492-9 (Version None)
Quarter: 2008Q1

REPORT INFORMATION
  Report Type: 
  Country: None (occurrence: None)
  Receive Date: 20080125
  Receipt Date: 20080117
  Transmission Date: 20080703
  Serious: Yes (Other)
  Sender: FDA-Public Use
  Company Number: A0702812A

PATIENT
  Age: 21 Year
  Sex: Male
  Weight: 72.7 kg

DRUGS (2)
  1. MALARONE [Suspect]
     Indication: MALARIA PROPHYLAXIS
     Route: 048
     Dates: start: 20050501, end: 20050701
  2. NO CONCURRENT MEDICATIONS [Concomitant]

REACTIONS (4)
  - ABNORMAL DREAMS [None]
  - ALOPECIA [None]
  - NIGHTMARE [None]
  - PSYCHOTIC DISORDER [None]
